FAERS Safety Report 8545314-9 (Version None)
Quarter: 2012Q3

REPORT INFORMATION
  Report Type: 
  Country: None (occurrence: None)
  Receive Date: 20120727
  Receipt Date: 20120716
  Transmission Date: 20120928
  Serious: Yes (Hospitalization, Disabling, Other)
  Sender: FDA-Public Use
  Company Number: US-009507513-1202USA03902

PATIENT

DRUGS (15)
  1. MECLIZINE HCL [Concomitant]
     Dosage: 25-50
  2. KLONOPIN [Concomitant]
  3. TENORMIN [Concomitant]
  4. PRINZIDE [Concomitant]
  5. ZOLOFT [Concomitant]
     Dosage: 50 MG, QD
     Dates: start: 20060101, end: 20080101
  6. LISINOPRIL [Concomitant]
     Indication: HYPERTENSION
     Dosage: UNK
     Dates: start: 20090101
  7. FOSAMAX [Suspect]
     Dosage: 70 MG, QW
     Route: 048
     Dates: start: 20010305, end: 20100101
  8. MK-9359 [Concomitant]
     Indication: HYPERTENSION
     Dosage: .25 MG, QD
  9. XANAX [Concomitant]
     Dosage: 0.75-1
  10. BONIVA [Concomitant]
     Indication: OSTEOPOROSIS
     Dates: start: 19990401, end: 20100101
  11. TOPROL-XL [Concomitant]
     Indication: HYPERTENSION
     Dosage: UNK
     Dates: start: 20040101, end: 20110101
  12. FOSAMAX [Suspect]
     Indication: OSTEOPOROSIS
     Route: 048
     Dates: start: 19990701, end: 20010305
  13. VANCENASE [Concomitant]
     Dosage: 2 UNK, QD
  14. MK-0152 [Concomitant]
  15. DIOVAN [Concomitant]
     Indication: HYPERTENSION
     Dosage: UNK
     Dates: start: 20060101, end: 20090101

REACTIONS (36)
  - JAW DISORDER [None]
  - BURSITIS [None]
  - RECTAL HAEMORRHAGE [None]
  - SINUSITIS [None]
  - BRONCHITIS [None]
  - URINARY TRACT INFECTION [None]
  - TOOTH DISORDER [None]
  - IRRITABLE BOWEL SYNDROME [None]
  - BLADDER DISORDER [None]
  - WEIGHT INCREASED [None]
  - CERVICOBRACHIAL SYNDROME [None]
  - TREATMENT NONCOMPLIANCE [None]
  - ARTERIOSCLEROSIS [None]
  - THROMBOSIS [None]
  - OSTEOARTHRITIS [None]
  - EPICONDYLITIS [None]
  - DIABETIC NEUROPATHY [None]
  - DIABETES MELLITUS INADEQUATE CONTROL [None]
  - BACK PAIN [None]
  - MUSCLE SPASMS [None]
  - PERIPHERAL VASCULAR DISORDER [None]
  - URGE INCONTINENCE [None]
  - EYE DISORDER [None]
  - MYOCLONUS [None]
  - TACHYCARDIA [None]
  - OSTEONECROSIS OF JAW [None]
  - TYPE 2 DIABETES MELLITUS [None]
  - DIABETIC NEPHROPATHY [None]
  - DRUG HYPERSENSITIVITY [None]
  - CELLULITIS [None]
  - TYMPANIC MEMBRANE DISORDER [None]
  - SUPRAVENTRICULAR TACHYCARDIA [None]
  - BONE DISORDER [None]
  - DENTAL CARIES [None]
  - TOOTH LOSS [None]
  - PAIN IN JAW [None]
